FAERS Safety Report 9344415 (Version 2)
Quarter: 2013Q4

REPORT INFORMATION
  Report Type: Report from Study
  Country: CA (occurrence: CA)
  Receive Date: 20130612
  Receipt Date: 20131213
  Transmission Date: 20140711
  Serious: Yes (Other)
  Sender: FDA-Public Use
  Company Number: CA-JNJFOC-20130602493

PATIENT
  Age: 48 Year
  Sex: Female
  Weight: 50 kg

DRUGS (7)
  1. REMICADE [Suspect]
     Indication: CROHN^S DISEASE
     Dosage: 0, 2, 6 WEEKS
     Route: 042
     Dates: start: 20130416
  2. REMICADE [Suspect]
     Indication: CROHN^S DISEASE
     Dosage: 6TH DOSE OF INFLIXIMAB THERAPY.
     Route: 042
     Dates: start: 20131203
  3. REMICADE [Suspect]
     Indication: CROHN^S DISEASE
     Dosage: 2ND INFUSION
     Route: 042
     Dates: start: 201305
  4. IMURAN [Concomitant]
     Route: 048
  5. ACETAMINOPHEN [Concomitant]
     Indication: PREMEDICATION
     Route: 048
     Dates: start: 20130502
  6. DIPHENHYDRAMINE [Concomitant]
     Indication: PREMEDICATION
     Route: 048
     Dates: start: 20130502
  7. HYDROCORTISONE [Concomitant]
     Indication: PREMEDICATION
     Route: 042
     Dates: start: 20130502

REACTIONS (3)
  - Hearing impaired [Recovered/Resolved]
  - Hyperacusis [Unknown]
  - Urticaria [Recovered/Resolved]
